FAERS Safety Report 15752354 (Version 1)
Quarter: 2018Q4

REPORT INFORMATION
  Report Type: Spontaneous
  Country: FR (occurrence: FR)
  Receive Date: 20181221
  Receipt Date: 20181221
  Transmission Date: 20190205
  Serious: Yes (Hospitalization)
  Sender: FDA-Public Use
  Company Number: FR-LPDUSPRD-20182415

PATIENT
  Age: 76 Year
  Sex: Female
  Weight: 60 kg

DRUGS (21)
  1. PROPOFOL MYLAN [Suspect]
     Active Substance: PROPOFOL
     Dosage: 320 MG,1 IN 1 D
     Route: 042
     Dates: start: 20181102, end: 20181102
  2. KETAMINE RENAUDIN [Suspect]
     Active Substance: KETAMINE
     Dosage: 20 MG,1 IN 1 D
     Route: 042
     Dates: start: 20181102, end: 20181102
  3. EXACYL [Suspect]
     Active Substance: TRANEXAMIC ACID
     Dosage: 2 GM,1 IN 1 D
     Route: 048
     Dates: start: 20181103, end: 20181103
  4. KETOPROFENE MEDAC [Suspect]
     Active Substance: KETOPROFEN
     Dosage: 100 MG/4 ML (200 MG,1 IN 1 D)
     Route: 042
     Dates: start: 20181103, end: 20181103
  5. CEFAZOLINE MYLAN [Suspect]
     Active Substance: CEFAZOLIN SODIUM
     Dosage: 4 GM,1 IN 1 D
     Route: 042
     Dates: start: 20181102, end: 20181102
  6. MIVACRON [Suspect]
     Active Substance: MIVACURIUM CHLORIDE
     Dosage: 14 MG,1 IN 1 D
     Route: 042
     Dates: start: 20181102, end: 20181102
  7. DROPERIDOL AGUETTANT [Suspect]
     Active Substance: DROPERIDOL
     Dosage: 0.6 MG,1 IN 1 D
     Route: 042
     Dates: start: 20181102, end: 20181102
  8. LOVENOX [Suspect]
     Active Substance: ENOXAPARIN SODIUM
     Dosage: 4000 IU,1 IN 1 D
     Route: 058
     Dates: start: 20181102, end: 20181111
  9. LANSOPRAZOLE MYLAN [Suspect]
     Active Substance: LANSOPRAZOLE
     Dosage: 30 MG,1 IN 1 D
     Route: 048
     Dates: start: 20181102, end: 20181114
  10. MOVICOL [Suspect]
     Active Substance: POLYETHYLENE GLYCOL 3350\POTASSIUM CHLORIDE\SODIUM BICARBONATE\SODIUM CHLORIDE
     Dosage: 1 DOSAGE FORMS,1 IN 1 D
     Route: 048
     Dates: start: 20181111
  11. CISATRACURIUM MYLAN [Suspect]
     Active Substance: CISATRACURIUM
     Dosage: 14 MG,1 IN 1 D
     Route: 042
     Dates: start: 20181102, end: 20181102
  12. PARACETAMOL B BRAUN [Suspect]
     Active Substance: ACETAMINOPHEN
     Dosage: 4 GM,1 IN 1 D
     Route: 042
     Dates: start: 20181102, end: 20181103
  13. POLYIONIQUE FORMULE 1A G5 BAXTER, SOLUTION POUR PERFUSION [Suspect]
     Active Substance: DEXTROSE\POTASSIUM CHLORIDE\SODIUM CHLORIDE
     Dosage: 1 DOSAGE FORMS,1 IN 1 D
     Route: 042
     Dates: start: 20181103, end: 20181103
  14. VENOFER [Suspect]
     Active Substance: IRON SUCROSE
     Dosage: 300 MG,1 IN 1 D
     Route: 040
     Dates: start: 20181103, end: 20181103
  15. CHIROCAINE [Suspect]
     Active Substance: LEVOBUPIVACAINE HYDROCHLORIDE
     Dosage: 50 MG,1 IN 1 D
     Route: 042
     Dates: start: 20181102, end: 20181102
  16. SUFENTANIL MYLAN [Suspect]
     Active Substance: SUFENTANIL
     Dosage: 50 MCG,1 IN 1 D
     Route: 042
     Dates: start: 20181102, end: 20181102
  17. MIDAZOLAM [Suspect]
     Active Substance: MIDAZOLAM HYDROCHLORIDE
     Dosage: 1 MG,1 IN 1 D
     Route: 042
     Dates: start: 20181102, end: 20181102
  18. DEXAMETHASONE MYLAN [Suspect]
     Active Substance: DEXAMETHASONE
     Dosage: 8 MG,1 IN 1 D
     Route: 042
     Dates: start: 20181102, end: 20181102
  19. PARACETAMOL SANOFI SYNTHELABO [Suspect]
     Active Substance: ACETAMINOPHEN
     Dosage: IF NEED BE (4 GM,1 IN 1 D)
     Route: 048
     Dates: start: 20181103
  20. EPHEDRINE AGUETTANT [Suspect]
     Active Substance: EPHEDRINE
     Dosage: 6 MG,1 IN 1 D
     Route: 042
     Dates: start: 20181102, end: 20181102
  21. NEFOPAM MEDISOL [Suspect]
     Active Substance: NEFOPAM HYDROCHLORIDE
     Dosage: AS NEEDED (80 MG,1 IN 1 D)
     Route: 048
     Dates: start: 20181103, end: 20181104

REACTIONS (1)
  - Acute generalised exanthematous pustulosis [Not Recovered/Not Resolved]

NARRATIVE: CASE EVENT DATE: 20181114
